FAERS Safety Report 10056795 (Version 1)
Quarter: 2014Q2

REPORT INFORMATION
  Report Type: Report from Study
  Country: ES (occurrence: ES)
  Receive Date: 20140403
  Receipt Date: 20140403
  Transmission Date: 20141212
  Serious: Yes (Death, Hospitalization)
  Sender: FDA-Public Use
  Company Number: ES-TEVA-473075USA

PATIENT
  Age: 31 Year
  Sex: Male

DRUGS (4)
  1. BENDAMUSTINE [Suspect]
     Indication: NON-HODGKIN^S LYMPHOMA
     Dosage: DAILY DOSE
     Route: 042
     Dates: start: 20110530, end: 20110531
  2. ARA-C [Concomitant]
     Route: 065
  3. VP-16 [Concomitant]
     Route: 065
  4. MELPHALAN [Concomitant]
     Route: 065

REACTIONS (2)
  - Bronchopneumonia [Fatal]
  - Neurological decompensation [Fatal]
